FAERS Safety Report 24807798 (Version 1)
Quarter: 2025Q1

REPORT INFORMATION
  Report Type: Report from Study
  Country: CA (occurrence: CA)
  Receive Date: 20250106
  Receipt Date: 20250106
  Transmission Date: 20250409
  Serious: Yes (Hospitalization)
  Sender: AMGEN
  Company Number: CA-BEH-2024190735

PATIENT
  Age: 67 Year
  Sex: Female

DRUGS (2)
  1. AVACOPAN [Suspect]
     Active Substance: AVACOPAN
     Indication: Vasculitis
     Dosage: 30 MG, BID
     Route: 048
     Dates: start: 20241021
  2. PREDNISONE [Concomitant]
     Active Substance: PREDNISONE
     Indication: Product used for unknown indication
     Route: 065

REACTIONS (5)
  - Oedema peripheral [Not Recovered/Not Resolved]
  - Cognitive disorder [Not Recovered/Not Resolved]
  - Scar [Not Recovered/Not Resolved]
  - Scab [Not Recovered/Not Resolved]
  - Off label use [Unknown]

NARRATIVE: CASE EVENT DATE: 20240101
